FAERS Safety Report 6672155-X (Version None)
Quarter: 2010Q2

REPORT INFORMATION
  Report Type: 
  Country: None (occurrence: None)
  Receive Date: 20100406
  Receipt Date: 20100322
  Transmission Date: 20101027
  Serious: Yes (Death, Life-Threatening, Hospitalization)
  Sender: FDA-Public Use
  Company Number: 2010000956

PATIENT
  Age: 53 Year
  Sex: Male

DRUGS (6)
  1. TARCEVA [Suspect]
     Indication: NON-SMALL CELL LUNG CANCER
     Dosage: 150 MG, QD, ORAL
     Route: 048
     Dates: start: 20091227, end: 20100107
  2. IBUPROFEN [Concomitant]
  3. DOMPERIDONE (DOMPERIDONE) [Concomitant]
  4. ACETAMINOPHEN [Concomitant]
  5. MORPHINE SULFATE [Concomitant]
  6. OMEPRAZOLE [Concomitant]

REACTIONS (9)
  - ABSCESS [None]
  - DIARRHOEA [None]
  - DIVERTICULUM [None]
  - GENERAL PHYSICAL HEALTH DETERIORATION [None]
  - INTESTINAL PERFORATION [None]
  - PAIN IN EXTREMITY [None]
  - PERICARDIAL EFFUSION [None]
  - PLEURAL EFFUSION [None]
  - STOMATITIS [None]
